FAERS Safety Report 25570688 (Version 1)
Quarter: 2025Q3

REPORT INFORMATION
  Report Type: Report from Study
  Country: US (occurrence: US)
  Receive Date: 20250717
  Receipt Date: 20250717
  Transmission Date: 20251020
  Serious: Yes (Hospitalization)
  Sender: JAZZ
  Company Number: US-JAZZ PHARMACEUTICALS-2025-US-017307

PATIENT
  Sex: Female

DRUGS (1)
  1. EPIDIOLEX [Suspect]
     Active Substance: CANNABIDIOL
     Indication: Focal dyscognitive seizures
     Dosage: 3 MILLILITER, BID
     Dates: start: 202412

REACTIONS (4)
  - Infection [Recovering/Resolving]
  - Blood sodium decreased [Recovering/Resolving]
  - Lethargy [Recovering/Resolving]
  - Off label use [Unknown]
